FAERS Safety Report 4550365-5 (Version None)
Quarter: 2004Q4

REPORT INFORMATION
  Report Type: 
  Country: None (occurrence: None)
  Receive Date: 20041227
  Receipt Date: 20041007
  Transmission Date: 20050328
  Serious: No
  Sender: FDA-Public Use
  Company Number: US094568

PATIENT

DRUGS (1)
  1. ARANESP [Suspect]
     Indication: RENAL FAILURE CHRONIC
     Dosage: 200 MCG, 1 IN 2 WEEKS

REACTIONS (1)
  - LOWER GASTROINTESTINAL HAEMORRHAGE [None]
